FAERS Safety Report 17812808 (Version 2)
Quarter: 2020Q2

REPORT INFORMATION
  Report Type: Spontaneous
  Country: HR (occurrence: HR)
  Receive Date: 20200521
  Receipt Date: 20200606
  Transmission Date: 20200714
  Serious: Yes (Death, Hospitalization)
  Sender: FDA-Public Use
  Company Number: HR-ROCHE-2603459

PATIENT
  Age: 67 Year
  Sex: Female
  Weight: 80 kg

DRUGS (10)
  1. HEPA MERZ [Concomitant]
  2. TORASEMIDE [Concomitant]
     Active Substance: TORSEMIDE
  3. PORTALAK [LACTULOSE] [Concomitant]
  4. MENADIONE [Concomitant]
     Active Substance: MENADIONE
  5. PROPRANOLOL [Concomitant]
     Active Substance: PROPRANOLOL HYDROCHLORIDE
  6. ALDACTONE [Concomitant]
     Active Substance: SPIRONOLACTONE
  7. TERLIPRESSIN [Concomitant]
     Active Substance: TERLIPRESSIN
  8. RIBAVIRIN. [Suspect]
     Active Substance: RIBAVIRIN
     Indication: PRODUCT USED FOR UNKNOWN INDICATION
     Dosage: 400 MG
     Route: 065
     Dates: start: 20200312
  9. EPCLUSA [Suspect]
     Active Substance: SOFOSBUVIR\VELPATASVIR
     Indication: PRODUCT USED FOR UNKNOWN INDICATION
     Dosage: 1 DOSAGE FORM, QD
     Route: 048
     Dates: start: 20200312, end: 20200321
  10. FUROSEMIDE. [Concomitant]
     Active Substance: FUROSEMIDE

REACTIONS (7)
  - Hypoglycaemia [Fatal]
  - Death [Fatal]
  - Renal impairment [Fatal]
  - Anuria [Fatal]
  - Multiple organ dysfunction syndrome [Fatal]
  - Encephalopathy [Fatal]
  - Shock [Fatal]

NARRATIVE: CASE EVENT DATE: 20200316
